FAERS Safety Report 17893320 (Version 1)
Quarter: 2020Q2

REPORT INFORMATION
  Report Type: Spontaneous
  Country: GB (occurrence: GB)
  Receive Date: 20200615
  Receipt Date: 20200615
  Transmission Date: 20200714
  Serious: Yes (Hospitalization)
  Sender: FDA-Public Use
  Company Number: GB-TEVA-2020-GB-1247679

PATIENT
  Age: 84 Year
  Sex: Female

DRUGS (16)
  1. CARBOCISTEINE [Concomitant]
     Active Substance: CARBOCYSTEINE
     Dosage: UNIT DOSE :1500 MILLIGRAM
     Route: 048
  2. ISOSORBIDE MONONITRATE. [Concomitant]
     Active Substance: ISOSORBIDE MONONITRATE
     Dosage: 90 MILLIGRAM DAILY; IN THE MORNING
     Route: 048
  3. LOSARTAN. [Concomitant]
     Active Substance: LOSARTAN
     Dosage: 50 MILLIGRAM DAILY; IN THE MORNING
     Route: 048
  4. PRAVASTATIN. [Concomitant]
     Active Substance: PRAVASTATIN
     Dosage: 20 MILLIGRAM DAILY; AT NIGHT
     Route: 048
  5. LEVOTHYROXINE. [Concomitant]
     Active Substance: LEVOTHYROXINE
     Dosage: 150 MICROGRAM DAILY; IN THE MORNING
     Route: 048
  6. TRELEGY ELLIPTA [Concomitant]
     Active Substance: FLUTICASONE FUROATE\UMECLIDINIUM BROMIDE\VILANTEROL TRIFENATATE
     Dosage: 1 DOSAGE FORMS DAILY; PUFF. IN THE MORNING.
     Route: 050
  7. ACCRETE D3 [Concomitant]
     Active Substance: CALCIUM CARBONATE\CHOLECALCIFEROL
     Dosage: 2 DOSAGE FORMS DAILY; AT TEATIME
     Route: 048
  8. MIRTAZAPINE. [Concomitant]
     Active Substance: MIRTAZAPINE
     Dosage: 30 MILLIGRAM DAILY; AT NIGHT
     Route: 048
  9. ACETYLSALICYLIC ACID [Suspect]
     Active Substance: ASPIRIN
     Dosage: 75 MILLIGRAM DAILY; IN THE MORNING
     Route: 048
     Dates: end: 20200516
  10. DIGOXIN. [Suspect]
     Active Substance: DIGOXIN
     Dosage: UNIT DOSE:125 MICROGRAM
     Dates: end: 20200516
  11. FOLIC ACID. [Concomitant]
     Active Substance: FOLIC ACID
     Dosage: 5 MILLIGRAM DAILY; IN THE MORNING
     Route: 048
  12. SALBUTAMOL [Concomitant]
     Active Substance: ALBUTEROL
     Dosage: 2.5MG/2.5ML
     Route: 050
  13. DOCUSATE [Concomitant]
     Active Substance: DOCUSATE
     Dosage: UNIT DOSE :200 MILLIGRAM
     Route: 048
  14. BISOPROLOL [Suspect]
     Active Substance: BISOPROLOL
     Dosage: UNIT DOSE :5 MILLIGRAM
     Route: 048
     Dates: end: 20200516
  15. APIXABAN [Suspect]
     Active Substance: APIXABAN
     Indication: ATRIAL FIBRILLATION
     Dosage: UNIT DOSE :10 MILLIGRAM
     Route: 048
  16. ESOMEPRAZOLE. [Concomitant]
     Active Substance: ESOMEPRAZOLE MAGNESIUM
     Dosage: 40 MILLIGRAM DAILY; IN THE MORNING
     Route: 048

REACTIONS (5)
  - Bradycardia [Recovering/Resolving]
  - Dyspnoea [Recovering/Resolving]
  - Fatigue [Recovering/Resolving]
  - Peptic ulcer [Recovering/Resolving]
  - Anaemia [Recovering/Resolving]

NARRATIVE: CASE EVENT DATE: 20200516
